FAERS Safety Report 6756502-6 (Version None)
Quarter: 2010Q2

REPORT INFORMATION
  Report Type: 
  Country: None (occurrence: None)
  Receive Date: 20100604
  Receipt Date: 20100519
  Transmission Date: 20101027
  Serious: Yes (Hospitalization)
  Sender: FDA-Public Use
  Company Number: B0636348A

PATIENT
  Sex: Male

DRUGS (5)
  1. ARTIST [Suspect]
     Indication: HYPERTENSION
     Dosage: 10MG PER DAY
     Route: 048
     Dates: start: 20090424
  2. CANDESARTAN CILEXETIL [Suspect]
     Indication: HYPERTENSION
     Dosage: 8MG PER DAY
     Route: 048
     Dates: start: 20040616
  3. NORVASC [Suspect]
     Indication: HYPERTENSION
     Dosage: 5MG PER DAY
     Route: 048
     Dates: start: 20050803
  4. LIPITOR [Concomitant]
     Route: 065
     Dates: start: 20040714
  5. PLAVIX [Concomitant]
     Route: 065
     Dates: start: 20071031

REACTIONS (6)
  - BRADYCARDIA [None]
  - CARDIO-RESPIRATORY ARREST [None]
  - DECREASED APPETITE [None]
  - HYPOTENSION [None]
  - MALAISE [None]
  - SOMNOLENCE [None]
